FAERS Safety Report 4352017-3 (Version None)
Quarter: 2004Q2

REPORT INFORMATION
  Report Type: 
  Country: None (occurrence: None)
  Receive Date: 20040503
  Receipt Date: 20040331
  Transmission Date: 20050107
  Serious: Yes (Hospitalization)
  Sender: FDA-Public Use
  Company Number: JP-MERCK-0404USA00166

PATIENT
  Age: 52 Year
  Sex: Female

DRUGS (2)
  1. ALDOMET [Suspect]
     Indication: HYPERTENSION
     Route: 048
     Dates: start: 20000821, end: 20040310
  2. ALDOMET [Suspect]
     Route: 048
     Dates: start: 20040326, end: 20040328

REACTIONS (4)
  - AKATHISIA [None]
  - BACK DISORDER [None]
  - INSOMNIA [None]
  - IRRITABILITY [None]
